FAERS Safety Report 7381028-9 (Version None)
Quarter: 2011Q1

REPORT INFORMATION
  Report Type: 
  Country: None (occurrence: None)
  Receive Date: 20110329
  Receipt Date: 20100324
  Transmission Date: 20110831
  Serious: No
  Sender: FDA-Public Use
  Company Number: US-AMGEN-KDL390683

PATIENT
  Age: 28 Year
  Sex: Male

DRUGS (3)
  1. PARICALCITOL [Concomitant]
     Dosage: 6 A?G, UNK
     Route: 042
  2. SENSIPAR [Suspect]
     Indication: HYPERPARATHYROIDISM SECONDARY
     Dosage: 90 MG, QD
     Dates: start: 20071101
  3. METOPROLOL TARTRATE [Concomitant]
     Dosage: 60 MG, UNK
     Dates: start: 20090923

REACTIONS (2)
  - BLOOD PARATHYROID HORMONE DECREASED [None]
  - DRUG INTERACTION [None]
